FAERS Safety Report 23569875 (Version 1)
Quarter: 2024Q1

REPORT INFORMATION
  Report Type: Spontaneous
  Country: US (occurrence: None)
  Receive Date: 20240226
  Receipt Date: 20240226
  Transmission Date: 20240409
  Serious: No
  Sender: FDA-Public Use
  Company Number: None

PATIENT
  Age: 56 Year
  Sex: Female
  Weight: 135 kg

DRUGS (3)
  1. CREON [Suspect]
     Active Substance: PANCRELIPASE AMYLASE\PANCRELIPASE LIPASE\PANCRELIPASE PROTEASE
     Indication: Pancreatic disorder
     Dosage: OTHER QUANTITY : 3 CAPSULE(S);?FREQUENCY : 3 TIMES A DAY;?
     Route: 048
     Dates: start: 20231216, end: 20231218
  2. Zyrtec D [Concomitant]
  3. FISH OIL [Concomitant]
     Active Substance: FISH OIL

REACTIONS (7)
  - Joint swelling [None]
  - Joint stiffness [None]
  - Arthralgia [None]
  - Musculoskeletal disorder [None]
  - Insomnia [None]
  - Discomfort [None]
  - Therapy cessation [None]

NARRATIVE: CASE EVENT DATE: 20231218
